FAERS Safety Report 21974324 (Version 1)
Quarter: 2023Q1

REPORT INFORMATION
  Report Type: Spontaneous
  Country: IT (occurrence: IT)
  Receive Date: 20230209
  Receipt Date: 20230209
  Transmission Date: 20230418
  Serious: Yes (Other)
  Sender: FDA-Public Use
  Company Number: IT-BRISTOL-MYERS SQUIBB COMPANY-2023-017230

PATIENT

DRUGS (1)
  1. NIVOLUMAB [Suspect]
     Active Substance: NIVOLUMAB
     Indication: Gastrointestinal carcinoma
     Dosage: DOSE : UNAV;     FREQ : UNAV

REACTIONS (3)
  - Muscular weakness [Unknown]
  - Myositis [Unknown]
  - Intentional product use issue [Unknown]
